FAERS Safety Report 20646640 (Version 1)
Quarter: 2022Q1

REPORT INFORMATION
  Report Type: Spontaneous
  Country: SK (occurrence: SK)
  Receive Date: 20220329
  Receipt Date: 20220329
  Transmission Date: 20220424
  Serious: Yes (Other)
  Sender: FDA-Public Use
  Company Number: SK-ABBVIE-22K-260-4312750-00

PATIENT
  Age: 45 Year
  Sex: Female

DRUGS (1)
  1. ADALIMUMAB [Suspect]
     Active Substance: ADALIMUMAB
     Indication: Oligoarthritis
     Dosage: UNK
     Route: 058
     Dates: start: 2017

REACTIONS (7)
  - Rosacea [Unknown]
  - Arthropod bite [Unknown]
  - Cyst [Unknown]
  - Meniscus injury [Unknown]
  - Synovial cyst [Unknown]
  - Inflammation [Unknown]
  - Lupus-like syndrome [Unknown]

NARRATIVE: CASE EVENT DATE: 20210401
